FAERS Safety Report 7346200-2 (Version None)
Quarter: 2011Q1

REPORT INFORMATION
  Report Type: 
  Country: None (occurrence: None)
  Receive Date: 20110311
  Receipt Date: 20110303
  Transmission Date: 20110831
  Serious: Yes (Hospitalization)
  Sender: FDA-Public Use
  Company Number: US-ELI_LILLY_AND_COMPANY-US201012004294

PATIENT
  Sex: Female
  Weight: 79.365 kg

DRUGS (5)
  1. MULTI-VITAMIN [Concomitant]
  2. EVISTA [Suspect]
     Indication: OSTEOPOROSIS
     Dosage: 60 MG, DAILY (1/D)
     Route: 048
     Dates: end: 20101017
  3. CALTRATE +D [Concomitant]
  4. ASPIRIN [Concomitant]
  5. THYROID TAB [Concomitant]

REACTIONS (4)
  - PAIN IN EXTREMITY [None]
  - OEDEMA PERIPHERAL [None]
  - HIP ARTHROPLASTY [None]
  - MUSCLE SPASMS [None]
